FAERS Safety Report 16290103 (Version 1)
Quarter: 2019Q2

REPORT INFORMATION
  Report Type: Spontaneous
  Country: US (occurrence: US)
  Receive Date: 20190508
  Receipt Date: 20190508
  Transmission Date: 20190711
  Serious: Yes (Other)
  Sender: FDA-Public Use
  Company Number: None

PATIENT
  Age: 68 Year
  Sex: Female
  Weight: 72.45 kg

DRUGS (7)
  1. ASPIRIN. [Concomitant]
     Active Substance: ASPIRIN
  2. MULTI VTAMIN [Concomitant]
  3. LISINIPRIL [Concomitant]
     Active Substance: LISINOPRIL
  4. VITAMIN D [Concomitant]
     Active Substance: VITAMIN D NOS
  5. REPATHA [Suspect]
     Active Substance: EVOLOCUMAB
     Indication: BLOOD CHOLESTEROL INCREASED
     Dosage: ?          OTHER ROUTE:INJECTED?
     Dates: start: 20190427, end: 20190427
  6. CLOPIDOGREL [Concomitant]
     Active Substance: CLOPIDOGREL BISULFATE
  7. ZETIA [Concomitant]
     Active Substance: EZETIMIBE

REACTIONS (9)
  - Abdominal pain upper [None]
  - Hyperhidrosis [None]
  - Throat tightness [None]
  - Cold sweat [None]
  - Rhinorrhoea [None]
  - Pruritus [None]
  - Dizziness [None]
  - Swollen tongue [None]
  - Rash [None]

NARRATIVE: CASE EVENT DATE: 20190503
